FAERS Safety Report 13835014 (Version 1)
Quarter: 2017Q3

REPORT INFORMATION
  Report Type: Report from Study
  Country: US (occurrence: US)
  Receive Date: 20170804
  Receipt Date: 20170804
  Transmission Date: 20171127
  Serious: Yes (Hospitalization, Other)
  Sender: FDA-Public Use
  Company Number: US-GILEAD-2017-0286131

PATIENT
  Age: 69 Year
  Sex: Female

DRUGS (2)
  1. RANOLAZINE. [Suspect]
     Active Substance: RANOLAZINE
     Dosage: UNK
     Route: 048
  2. RANOLAZINE. [Suspect]
     Active Substance: RANOLAZINE
     Indication: ANGINA PECTORIS
     Dosage: 1000 MG,
     Route: 048
     Dates: start: 2012

REACTIONS (4)
  - Asthma [Unknown]
  - Swelling [Unknown]
  - Catheterisation cardiac [Unknown]
  - Cardiac failure congestive [Unknown]
